FAERS Safety Report 23731920 (Version 1)
Quarter: 2024Q2

REPORT INFORMATION
  Report Type: Spontaneous
  Country: US (occurrence: None)
  Receive Date: 20240410
  Receipt Date: 20240410
  Transmission Date: 20240716
  Serious: No
  Sender: FDA-Public Use
  Company Number: None

PATIENT
  Age: 24 Month
  Sex: Male
  Weight: 13.05 kg

DRUGS (2)
  1. MONTELUKAST SODIUM [Suspect]
     Active Substance: MONTELUKAST SODIUM
     Indication: Rhinitis
     Dosage: OTHER QUANTITY : 1 TABLET(S);?FREQUENCY : DAILY;?
     Route: 048
     Dates: start: 20240406, end: 20240410
  2. ZYRTEC [Concomitant]
     Active Substance: CETIRIZINE HYDROCHLORIDE

REACTIONS (7)
  - Agitation neonatal [None]
  - Irritability [None]
  - Hypoplastic left heart syndrome [None]
  - Coarctation of the aorta [None]
  - Aortic stenosis [None]
  - Mitral valve stenosis [None]
  - Pneumothorax [None]

NARRATIVE: CASE EVENT DATE: 20240410
